FAERS Safety Report 23159978 (Version 1)
Quarter: 2023Q4

REPORT INFORMATION
  Report Type: Spontaneous
  Country: JP (occurrence: JP)
  Receive Date: 20231108
  Receipt Date: 20231108
  Transmission Date: 20240110
  Serious: No
  Sender: FDA-Public Use
  Company Number: JP-SCALL-2023-011435-2

PATIENT
  Age: 75 Year
  Sex: Male

DRUGS (7)
  1. DUTASTERIDE [Suspect]
     Active Substance: DUTASTERIDE
     Indication: Benign prostatic hyperplasia
     Dosage: 0.5 MG, QD
     Route: 048
     Dates: start: 20221229
  2. SENNOSIDES (SENNOSIDES) [Suspect]
     Active Substance: SENNOSIDES
     Indication: Constipation
     Dosage: 12 MG, OD
     Route: 065
     Dates: start: 20201205
  3. tamsulosin hydrochloride (Harnal D) [Concomitant]
     Indication: Pollakiuria
     Dosage: 0.2 MG, OD
     Dates: start: 20150302
  4. metformin hydrochloride (Metgluco) [Concomitant]
     Dosage: 500 MG, OD
     Dates: start: 20191107
  5. sitagliptin?phosphate (Januvia (Sitagliptin Phosphate Hydrate)) [Concomitant]
     Indication: Diabetes mellitus
     Dosage: 50 MG, OD
     Dates: start: 20150929
  6. benzbromarone (Urinorm (Benzbromarone)) [Concomitant]
     Dosage: 50MG, OD
  7. candesartan cilexetil?(Blopress) [Concomitant]
     Indication: Hypertension
     Dosage: 4 MG, OD
     Dates: start: 20150602

REACTIONS (1)
  - Anal fissure [Recovering/Resolving]

NARRATIVE: CASE EVENT DATE: 20230101
